FAERS Safety Report 9396747 (Version 1)
Quarter: 2013Q3

REPORT INFORMATION
  Report Type: Report from Study
  Country: ZW (occurrence: ZW)
  Receive Date: 20130712
  Receipt Date: 20130712
  Transmission Date: 20140515
  Serious: Yes (Death, Life-Threatening, Hospitalization)
  Sender: FDA-Public Use
  Company Number: ZW-009507513-1010USA01812

PATIENT
  Sex: Male

DRUGS (3)
  1. RALTEGRAVIR POTASSIUM [Suspect]
     Indication: HIV INFECTION
     Dosage: UNK
     Route: 048
     Dates: start: 20100907
  2. LOPINAVIR (+) RITONAVIR [Suspect]
     Indication: HIV INFECTION
     Dosage: UNK
     Route: 048
     Dates: start: 20100907
  3. CEFTRIAXONE SODIUM [Concomitant]
     Dosage: UNK
     Dates: start: 20101009

REACTIONS (3)
  - Death [Fatal]
  - Diarrhoea [Fatal]
  - Hypokalaemia [Fatal]
